FAERS Safety Report 4839404-1 (Version None)
Quarter: 2005Q4

REPORT INFORMATION
  Report Type: 
  Country: None (occurrence: None)
  Receive Date: 20051129
  Receipt Date: 20050315
  Transmission Date: 20060501
  Serious: Yes (Other)
  Sender: FDA-Public Use
  Company Number: US-GLAXOSMITHKLINE-A0549872A

PATIENT
  Age: 53 Year
  Sex: Male

DRUGS (3)
  1. WELLBUTRIN [Suspect]
     Indication: SEXUAL DYSFUNCTION
     Dosage: 200MG PER DAY
     Route: 048
     Dates: start: 20050109, end: 20050223
  2. PAXIL [Concomitant]
  3. EFFEXOR [Concomitant]

REACTIONS (1)
  - CONVULSION [None]
